FAERS Safety Report 9889633 (Version 1)
Quarter: 2014Q1

REPORT INFORMATION
  Report Type: Spontaneous
  Country: CA (occurrence: CA)
  Receive Date: 20140211
  Receipt Date: 20140211
  Transmission Date: 20141002
  Serious: Yes (Death)
  Sender: FDA-Public Use
  Company Number: CA-MYLANLABS-2014S1002167

PATIENT
  Sex: 0

DRUGS (1)
  1. EPIPEN [Suspect]

REACTIONS (1)
  - Complication of device insertion [Fatal]
